FAERS Safety Report 8811265 (Version 1)
Quarter: 2012Q4

REPORT INFORMATION
  Report Type: 
  Country: CZ (occurrence: CZ)
  Receive Date: 20120927
  Receipt Date: 20120927
  Transmission Date: 20130627
  Serious: Yes (Other)
  Sender: FDA-Public Use
  Company Number: CZ-PFIZER INC-2012208223

PATIENT
  Sex: Female

DRUGS (1)
  1. SORTIS [Suspect]
     Dosage: UNK

REACTIONS (1)
  - Polyneuropathy [Unknown]
